FAERS Safety Report 12771512 (Version 1)
Quarter: 2016Q3

REPORT INFORMATION
  Report Type: Spontaneous
  Country: US (occurrence: US)
  Receive Date: 20160922
  Receipt Date: 20160922
  Transmission Date: 20161109
  Serious: No
  Sender: FDA-Public Use
  Company Number: US-AMGEN-USASP2016041507

PATIENT
  Sex: Male

DRUGS (2)
  1. NEUPOGEN [Suspect]
     Active Substance: FILGRASTIM
     Indication: BLOOD COUNT ABNORMAL
     Dosage: UNK, THREE TIMES PER WEEK
     Route: 065
  2. NEULASTA [Suspect]
     Active Substance: PEGFILGRASTIM
     Indication: BLOOD COUNT ABNORMAL
     Dosage: UNK
     Route: 065

REACTIONS (2)
  - Drug effect incomplete [Unknown]
  - Off label use [Unknown]
